FAERS Safety Report 10093561 (Version 1)
Quarter: 2014Q2

REPORT INFORMATION
  Report Type: Spontaneous
  Country: US (occurrence: US)
  Receive Date: 20140421
  Receipt Date: 20140421
  Transmission Date: 20141212
  Serious: No
  Sender: FDA-Public Use
  Company Number: US-SA-2014SA006692

PATIENT
  Sex: Female

DRUGS (5)
  1. ALLEGRA [Suspect]
     Indication: URTICARIA
     Route: 048
  2. ZYRTEC [Suspect]
     Route: 065
  3. CLARITIN [Concomitant]
     Route: 065
  4. BENADRYL [Concomitant]
  5. ALLEGRA D [Suspect]
     Route: 065

REACTIONS (1)
  - Drug ineffective [Unknown]
